FAERS Safety Report 8885197 (Version 3)
Quarter: 2012Q4

REPORT INFORMATION
  Report Type: 
  Country: US (occurrence: US)
  Receive Date: 20121102
  Receipt Date: 20121221
  Transmission Date: 20130627
  Serious: Yes (Hospitalization)
  Sender: FDA-Public Use
  Company Number: US-PFIZER INC-2012272135

PATIENT
  Age: 81 Year
  Sex: Female
  Weight: 66.67 kg

DRUGS (8)
  1. SUTENT [Suspect]
     Indication: METASTATIC RENAL CELL CARCINOMA
     Dosage: 12.5mg, three capsules daily (total daily dose 37.5 mg), 14 days on + 7 days off
     Route: 048
     Dates: start: 20120903
  2. COUMADINE [Suspect]
     Indication: CLOT BLOOD
     Dosage: UNK
  3. PLAVIX [Suspect]
     Dosage: UNK
     Dates: end: 20121031
  4. DIGOXIN [Concomitant]
     Dosage: UNK
  5. ZETIA [Concomitant]
     Dosage: UNK
  6. ACETYLSALICYLIC ACID [Concomitant]
     Dosage: 81 mg, UNK
  7. ATENOLOL [Concomitant]
     Dosage: UNK
  8. ALISKIREN [Concomitant]
     Dosage: UNK, PM

REACTIONS (9)
  - Epistaxis [Recovered/Resolved]
  - Abdominal pain upper [Unknown]
  - Stress [Unknown]
  - Alopecia [Unknown]
  - Decreased appetite [Unknown]
  - International normalised ratio abnormal [Unknown]
  - Oesophageal pain [Unknown]
  - Dyspnoea [Unknown]
  - Off label use [Unknown]
